FAERS Safety Report 6987986-6 (Version None)
Quarter: 2010Q3

REPORT INFORMATION
  Report Type: 
  Country: None (occurrence: None)
  Receive Date: 20100830
  Receipt Date: 20090623
  Transmission Date: 20110219
  Serious: No
  Sender: FDA-Public Use
  Company Number: 2009-00176

PATIENT
  Age: 67 Year
  Sex: Male
  Weight: 99.7913 kg

DRUGS (12)
  1. ZICAM COLD REMEDY GEL SWABS [Suspect]
     Dosage: QD, 8 MONTHS
     Dates: start: 20081006, end: 20090622
  2. ZICAM COLD REMDY NASAL GEL [Suspect]
     Dosage: QD, 8 MONTHS
     Dates: start: 20081006, end: 20090622
  3. ZICAM COLD REMEDY NASAL GEL [Suspect]
     Dosage: QID X 8 MONTHS
     Dates: start: 20081006, end: 20090622
  4. NOVOLONG INSULIN [Concomitant]
  5. LEVEMIR [Concomitant]
  6. METFORMIN HCL [Concomitant]
  7. SYNTHROID [Concomitant]
  8. LOVAZA [Concomitant]
  9. MULTI-VITAMIN [Concomitant]
  10. BIOFLAVONOIDS [Concomitant]
  11. VITAMINS C + D [Concomitant]
  12. COQ10 [Concomitant]

REACTIONS (1)
  - ANOSMIA [None]
